FAERS Safety Report 5756105-6 (Version None)
Quarter: 2008Q2

REPORT INFORMATION
  Report Type: 
  Country: None (occurrence: None)
  Receive Date: 20080602
  Receipt Date: 20080528
  Transmission Date: 20081010
  Serious: Yes (Hospitalization, Other)
  Sender: FDA-Public Use
  Company Number: US-BRISTOL-MYERS SQUIBB COMPANY-14207732

PATIENT
  Age: 64 Year
  Sex: Male
  Weight: 69 kg

DRUGS (4)
  1. ERBITUX [Suspect]
     Indication: LARYNGEAL CANCER
     Dosage: FIRST INFUSION TAKEN ON 21APR08.
     Dates: start: 20080506, end: 20080506
  2. CISPLATIN [Suspect]
     Indication: LARYNGEAL CANCER
     Dosage: FIRST INFUSION TAKEN ON 21APR08.
     Dates: start: 20080501, end: 20080501
  3. RADIATION THERAPY [Suspect]
     Indication: LARYNGEAL CANCER
     Dosage: 1 DOSAGE FORM = 3800CGY EXTERNAL BEAM IMRT GIVEN IN 19 FRACTIONS IN 25 DAYS.
  4. CLOXACILLIN SODIUM [Suspect]

REACTIONS (4)
  - DIARRHOEA [None]
  - FEBRILE NEUTROPENIA [None]
  - HAEMOGLOBIN DECREASED [None]
  - LEUKOPENIA [None]
